FAERS Safety Report 12362272 (Version 1)
Quarter: 2016Q2

REPORT INFORMATION
  Report Type: Spontaneous
  Country: TR (occurrence: TR)
  Receive Date: 20160512
  Receipt Date: 20160512
  Transmission Date: 20160815
  Serious: Yes (Death)
  Sender: FDA-Public Use
  Company Number: TR-IMPAX LABORATORIES, INC-2016-IPXL-00489

PATIENT
  Age: 1 Day
  Sex: Male
  Weight: 1.71 kg

DRUGS (1)
  1. DIVALPROEX SODIUM ER [Suspect]
     Active Substance: DIVALPROEX SODIUM
     Indication: PRODUCT USED FOR UNKNOWN INDICATION
     Dosage: UNK UNK, DAILY
     Route: 064

REACTIONS (17)
  - Hiatus hernia [Fatal]
  - Low set ears [Fatal]
  - Bone deformity [Fatal]
  - Choroidal coloboma [Fatal]
  - Foetal exposure during pregnancy [Fatal]
  - Congenital nose malformation [Fatal]
  - Ectopic kidney [Fatal]
  - Pulmonary hypertension [Fatal]
  - Humerus fracture [Fatal]
  - Retinal coloboma [Fatal]
  - Hand deformity [Fatal]
  - Foetal anticonvulsant syndrome [Fatal]
  - Gastric volvulus [Fatal]
  - Respiratory failure [Fatal]
  - Retrognathia [Fatal]
  - Limb hypoplasia congenital [Fatal]
  - Hypertelorism of orbit [Fatal]
